FAERS Safety Report 18357898 (Version 2)
Quarter: 2020Q4

REPORT INFORMATION
  Report Type: Spontaneous
  Country: PT (occurrence: PT)
  Receive Date: 20201007
  Receipt Date: 20201014
  Transmission Date: 20210114
  Serious: Yes (Hospitalization, Other)
  Sender: FDA-Public Use
  Company Number: PT-GILEAD-2020-0497189

PATIENT
  Age: 67 Year
  Sex: Female

DRUGS (2)
  1. ZYDELIG [Suspect]
     Active Substance: IDELALISIB
     Indication: CHRONIC LYMPHOCYTIC LEUKAEMIA
     Dosage: UNK
     Route: 065
     Dates: start: 201811
  2. ZYDELIG [Suspect]
     Active Substance: IDELALISIB
     Dosage: UNDER ZYDELIG AT APPROXIMATELY 11 MONTHS
     Route: 065
     Dates: start: 2019

REACTIONS (8)
  - Arthralgia [Unknown]
  - Pyrexia [Unknown]
  - Inflammation [Unknown]
  - Dyspnoea [Unknown]
  - Hypersensitivity pneumonitis [Unknown]
  - Pneumonitis [Unknown]
  - Cough [Unknown]
  - Respiratory failure [Unknown]

NARRATIVE: CASE EVENT DATE: 201911
